FAERS Safety Report 8806677 (Version 10)
Quarter: 2019Q3

REPORT INFORMATION
  Report Type: Report from Study
  Country: BE (occurrence: BE)
  Receive Date: 20120925
  Receipt Date: 20190924
  Transmission Date: 20191005
  Serious: Yes (Death, Life-Threatening, Hospitalization, Other)
  Sender: FDA-Public Use
  Company Number: PHHY2012BE078260

PATIENT
  Age: 73 Year
  Sex: Male

DRUGS (15)
  1. DIFLUCAN [Concomitant]
     Active Substance: FLUCONAZOLE
     Indication: PRODUCT USED FOR UNKNOWN INDICATION
     Dosage: UNK
     Route: 042
     Dates: start: 20120823, end: 20120824
  2. CIPROXINE [Concomitant]
     Active Substance: CIPROFLOXACIN
     Indication: PRODUCT USED FOR UNKNOWN INDICATION
     Dosage: UNK
     Route: 065
     Dates: start: 20120827, end: 20120902
  3. COPAXONE [Concomitant]
     Active Substance: GLATIRAMER ACETATE
     Indication: PRODUCT USED FOR UNKNOWN INDICATION
     Dosage: UNK
     Route: 065
  4. SIPRALEXA [Concomitant]
     Active Substance: ESCITALOPRAM OXALATE
     Indication: PRODUCT USED FOR UNKNOWN INDICATION
     Dosage: 1 DF, UNK
     Route: 048
     Dates: start: 20120719
  5. TENORMIN MITE [Concomitant]
     Indication: PRODUCT USED FOR UNKNOWN INDICATION
     Dosage: UNK
     Route: 048
     Dates: start: 20120822, end: 20120822
  6. ZANTAC [Concomitant]
     Active Substance: RANITIDINE HYDROCHLORIDE
     Indication: PRODUCT USED FOR UNKNOWN INDICATION
     Dosage: 1 DF, BID
     Route: 048
     Dates: start: 20120717
  7. NEGABAN [Concomitant]
     Active Substance: TEMOCILLIN
     Indication: PRODUCT USED FOR UNKNOWN INDICATION
     Dosage: UNK
     Route: 048
     Dates: start: 20120827, end: 20120902
  8. MULTIGAM [Concomitant]
     Active Substance: HUMAN IMMUNOGLOBULIN G
     Indication: PRODUCT USED FOR UNKNOWN INDICATION
     Dosage: UNK
     Route: 042
     Dates: start: 20120827, end: 20120827
  9. EUSAPRIM FORTE [Concomitant]
     Active Substance: SULFAMETHOXAZOLE\TRIMETHOPRIM
     Indication: PRODUCT USED FOR UNKNOWN INDICATION
     Dosage: 1 DF, BID
     Route: 048
     Dates: start: 20120731, end: 20120807
  10. URICAN [Concomitant]
     Indication: PRODUCT USED FOR UNKNOWN INDICATION
     Dosage: 1 DF, BID
     Route: 048
     Dates: start: 20120731
  11. ASAFLOW [Concomitant]
     Active Substance: ASPIRIN
     Indication: PRODUCT USED FOR UNKNOWN INDICATION
     Dosage: 1 DF, UNK
     Route: 048
     Dates: start: 20120716, end: 20120803
  12. ASAFLOW [Concomitant]
     Active Substance: ASPIRIN
     Dosage: UNK
     Route: 048
     Dates: start: 20120803, end: 20120806
  13. GILENYA [Suspect]
     Active Substance: FINGOLIMOD HYDROCHLORIDE
     Indication: MULTIPLE SCLEROSIS
     Dosage: 0.5 MG, QD
     Route: 048
     Dates: start: 20120806, end: 20120819
  14. ASAFLOW [Concomitant]
     Active Substance: ASPIRIN
     Dosage: UNK
     Route: 048
     Dates: start: 20120806, end: 20120817
  15. DAFALGAN [Concomitant]
     Active Substance: ACETAMINOPHEN
     Indication: PRODUCT USED FOR UNKNOWN INDICATION
     Dosage: 1 DF, PRN
     Route: 048
     Dates: start: 20120724

REACTIONS (50)
  - General physical health deterioration [Fatal]
  - Hypercalcaemia [Fatal]
  - Lipase increased [Fatal]
  - Blood immunoglobulin A increased [Fatal]
  - Pyrexia [Unknown]
  - Glomerular filtration rate decreased [Unknown]
  - Alpha 2 globulin decreased [Unknown]
  - Immunoglobulins decreased [Unknown]
  - Platelet count decreased [Unknown]
  - Pleural effusion [Recovering/Resolving]
  - Dyspnoea [Fatal]
  - Anuria [Fatal]
  - Blood immunoglobulin G decreased [Unknown]
  - C-reactive protein increased [Unknown]
  - Tachycardia [Unknown]
  - Agitation [Recovering/Resolving]
  - Haematocrit decreased [Unknown]
  - Beta globulin increased [Unknown]
  - Blood creatinine increased [Unknown]
  - Restlessness [Recovering/Resolving]
  - Pneumonia [Fatal]
  - Plasma cell myeloma [Recovering/Resolving]
  - Atrial fibrillation [Recovered/Resolved]
  - Hypotension [Unknown]
  - Lymphocyte count decreased [Unknown]
  - Acute kidney injury [Fatal]
  - Blood albumin decreased [Fatal]
  - Activated partial thromboplastin time prolonged [Unknown]
  - Multiple sclerosis [Unknown]
  - Septic shock [Fatal]
  - Fibrin D dimer increased [Fatal]
  - Sepsis [Unknown]
  - Haemorrhagic diathesis [Recovering/Resolving]
  - Red blood cell count decreased [Unknown]
  - Haemoglobin decreased [Unknown]
  - Lower respiratory tract infection [Unknown]
  - Secretion discharge [Recovering/Resolving]
  - Aspiration [Recovering/Resolving]
  - Troponin T increased [Fatal]
  - Blood immunoglobulin M decreased [Unknown]
  - Circulatory collapse [Unknown]
  - Haemorrhage [Recovering/Resolving]
  - Rales [Recovering/Resolving]
  - Thrombocytopenia [Recovered/Resolved]
  - Feeling abnormal [Recovering/Resolving]
  - Cough [Fatal]
  - Polyuria [Fatal]
  - Blood lactate dehydrogenase increased [Unknown]
  - Blood urea increased [Unknown]
  - Blood electrolytes abnormal [Recovering/Resolving]

NARRATIVE: CASE EVENT DATE: 20120817
